FAERS Safety Report 25119531 (Version 2)
Quarter: 2025Q2

REPORT INFORMATION
  Report Type: Spontaneous
  Country: PT (occurrence: PT)
  Receive Date: 20250325
  Receipt Date: 20250428
  Transmission Date: 20250717
  Serious: No
  Sender: MYLAN
  Company Number: PT-MYLANLABS-2025M1025073

PATIENT

DRUGS (1)
  1. EPIPEN [Suspect]
     Active Substance: EPINEPHRINE
     Indication: Hypersensitivity

REACTIONS (1)
  - Product quality issue [Unknown]
